FAERS Safety Report 6132242-1 (Version None)
Quarter: 2009Q1

REPORT INFORMATION
  Report Type: 
  Country: None (occurrence: None)
  Receive Date: 20090325
  Receipt Date: 20090303
  Transmission Date: 20090719
  Serious: Yes (Hospitalization)
  Sender: FDA-Public Use
  Company Number: FR-PFIZER INC-2009178954

PATIENT

DRUGS (16)
  1. BLINDED *PLACEBO [Suspect]
     Indication: CARDIAC FAILURE
     Dosage: BLINDED THERAPY
     Route: 048
     Dates: start: 20081112
  2. EPLERENONE [Suspect]
     Indication: CARDIAC FAILURE
     Dosage: BLINDED THERAPY
     Route: 048
     Dates: start: 20081112
  3. KARDEGIC [Concomitant]
     Dosage: 75 MG, UNK
  4. TAREG [Concomitant]
     Dosage: 160 MG, UNK
  5. PLAVIX [Concomitant]
     Dosage: 175 MG, UNK
  6. CRESTOR [Concomitant]
     Dosage: 5 MG, UNK
  7. ZANIDIP [Concomitant]
     Dosage: 10 MG, UNK
  8. LASIX [Concomitant]
     Dosage: 80 MG, UNK
  9. STILNOX [Concomitant]
     Dosage: 5 MG, UNK
  10. NITRODERM [Concomitant]
     Dosage: 10 MG, UNK
  11. TADENAN [Concomitant]
     Dosage: 50 MG, UNK
  12. EUPANTOL [Concomitant]
     Dosage: 20 MG, UNK
  13. OGASTRO [Concomitant]
     Dosage: 30 MG, UNK
  14. CARDENSIEL [Concomitant]
     Dosage: 2.5 MG, UNK
  15. POVIDONE-IODINE [Concomitant]
     Dosage: UNK
  16. NITROGLYCERIN [Concomitant]
     Dosage: UNK

REACTIONS (1)
  - LOCALISED INFECTION [None]
